FAERS Safety Report 5222002-8 (Version None)
Quarter: 2007Q1

REPORT INFORMATION
  Report Type: 
  Country: None (occurrence: None)
  Receive Date: 20070129
  Receipt Date: 20060315
  Transmission Date: 20070707
  Serious: No
  Sender: FDA-Public Use
  Company Number: US-GLAXOSMITHKLINE-A0597697A

PATIENT
  Age: 13 Year
  Sex: Male

DRUGS (3)
  1. BUPROPION HYDROCHLORIDE [Suspect]
     Indication: ATTENTION DEFICIT/HYPERACTIVITY DISORDER
     Dosage: 100MG TWICE PER DAY
     Route: 048
     Dates: start: 20051201, end: 20060101
  2. ALLEGRA [Concomitant]
  3. RISPERDAL [Concomitant]

REACTIONS (2)
  - EMOTIONAL DISORDER [None]
  - ENURESIS [None]
